FAERS Safety Report 12375730 (Version 1)
Quarter: 2016Q2

REPORT INFORMATION
  Report Type: Spontaneous
  Country: NO (occurrence: NO)
  Receive Date: 20160517
  Receipt Date: 20160517
  Transmission Date: 20160815
  Serious: Yes (Hospitalization)
  Sender: FDA-Public Use
  Company Number: NO-BAYER-2016-094025

PATIENT
  Sex: Male

DRUGS (2)
  1. XOFIGO [Suspect]
     Active Substance: RADIUM RA-223 DICHLORIDE
     Indication: PROSTATE CANCER METASTATIC
     Dosage: UNK
     Dates: start: 201309, end: 201402
  2. XOFIGO [Suspect]
     Active Substance: RADIUM RA-223 DICHLORIDE
     Indication: PROSTATE CANCER METASTATIC
     Dosage: UNK
     Dates: start: 201506, end: 201511

REACTIONS (7)
  - Pain [None]
  - Decreased appetite [None]
  - Fatigue [None]
  - General physical health deterioration [None]
  - Nausea [None]
  - Off label use [None]
  - Diarrhoea [None]

NARRATIVE: CASE EVENT DATE: 2015
